FAERS Safety Report 11050738 (Version 1)
Quarter: 2015Q2

REPORT INFORMATION
  Report Type: Report from Study
  Country: US (occurrence: US)
  Receive Date: 20150421
  Receipt Date: 20150421
  Transmission Date: 20150821
  Serious: Yes (Hospitalization)
  Sender: FDA-Public Use
  Company Number: US-BIOGENIDEC-2015BI048097

PATIENT
  Age: 42 Year

DRUGS (13)
  1. TECFIDERA [Suspect]
     Active Substance: DIMETHYL FUMARATE
     Indication: RELAPSING-REMITTING MULTIPLE SCLEROSIS
     Route: 048
     Dates: start: 20140613, end: 20140619
  2. VALIUM [Concomitant]
     Active Substance: DIAZEPAM
  3. NEFAZODONE [Concomitant]
     Active Substance: NEFAZODONE
  4. GABAPENTIN. [Concomitant]
     Active Substance: GABAPENTIN
  5. LIPITOR [Concomitant]
     Active Substance: ATORVASTATIN CALCIUM
  6. LIBIUM [Concomitant]
  7. DICLOFEANC [Concomitant]
  8. DOCUSATE [Concomitant]
     Active Substance: DOCUSATE
  9. TECFIDERA [Suspect]
     Active Substance: DIMETHYL FUMARATE
     Indication: RELAPSING-REMITTING MULTIPLE SCLEROSIS
     Route: 048
     Dates: start: 20140620
  10. NORCO [Concomitant]
     Active Substance: ACETAMINOPHEN\HYDROCODONE BITARTRATE
  11. FISH OIL [Concomitant]
     Active Substance: FISH OIL
  12. SEROQUEL [Concomitant]
     Active Substance: QUETIAPINE FUMARATE
  13. DEPAKOTE [Concomitant]
     Active Substance: DIVALPROEX SODIUM

REACTIONS (4)
  - Joint injury [Unknown]
  - Multiple sclerosis relapse [Unknown]
  - Tibia fracture [Unknown]
  - Limb injury [Unknown]

NARRATIVE: CASE EVENT DATE: 20150205
